FAERS Safety Report 10014570 (Version 1)
Quarter: 2014Q1

REPORT INFORMATION
  Report Type: Spontaneous
  Country: US (occurrence: US)
  Receive Date: 20140317
  Receipt Date: 20140317
  Transmission Date: 20141002
  Serious: No
  Sender: FDA-Public Use
  Company Number: US-ROXANE LABORATORIES, INC.-2014-RO-00378RO

PATIENT
  Sex: Female

DRUGS (3)
  1. EXEMESTANE [Suspect]
     Indication: PROPHYLAXIS
     Dosage: 25 MG
     Route: 048
     Dates: end: 201310
  2. EXEMESTANE [Suspect]
     Dosage: 25 MG
     Route: 048
     Dates: start: 201401
  3. SIMVASTATIN [Concomitant]
     Route: 065

REACTIONS (2)
  - Bone pain [Recovered/Resolved]
  - Dyspnoea [Recovered/Resolved]
